FAERS Safety Report 8877675 (Version 3)
Quarter: 2013Q3

REPORT INFORMATION
  Report Type: Report from Study
  Country: US (occurrence: US)
  Receive Date: 20121024
  Receipt Date: 20130709
  Transmission Date: 20140515
  Serious: Yes (Hospitalization)
  Sender: FDA-Public Use
  Company Number: US-ROCHE-1145179

PATIENT
  Age: 43 Year
  Sex: Female

DRUGS (3)
  1. PEG-INTERFERON ALFA 2A [Suspect]
     Indication: CHRONIC HEPATITIS C
     Dosage: DOSE PRIOR TO SAE26/SEP/2012
     Route: 065
     Dates: start: 20120815
  2. RIBAVIRIN [Suspect]
     Indication: CHRONIC HEPATITIS C
     Dosage: LAST DOSE PRIOR TO SAE:01/OCT/2012
     Route: 065
     Dates: start: 20120815
  3. TELAPREVIR [Suspect]
     Indication: CHRONIC HEPATITIS C
     Dosage: LAST DOSE PRIOR TO SAE:01/OCT/2012
     Route: 065
     Dates: start: 20120815

REACTIONS (1)
  - Gastritis erosive [Recovered/Resolved]
